FAERS Safety Report 5022245-2 (Version None)
Quarter: 2006Q2

REPORT INFORMATION
  Report Type: 
  Country: None (occurrence: None)
  Receive Date: 20060501
  Receipt Date: 20060419
  Transmission Date: 20061013
  Serious: No
  Sender: FDA-Public Use
  Company Number: M000879

PATIENT

DRUGS (2)
  1. ACETYLCYSTEINE (ORAL) [Suspect]
     Indication: DRUG DEPENDENCE
     Dosage: 2400 MG ORAL CAPSULE
     Route: 048
  2. ACETYLCYSTEINE (ORAL) [Suspect]
     Indication: DRUG WITHDRAWAL SYNDROME
     Dosage: 2400 MG ORAL CAPSULE
     Route: 048

REACTIONS (1)
  - INFUSION SITE IRRITATION [None]
